FAERS Safety Report 19801165 (Version 6)
Quarter: 2024Q3

REPORT INFORMATION
  Report Type: Report from Study
  Country: JP (occurrence: JP)
  Receive Date: 20210908
  Receipt Date: 20240909
  Transmission Date: 20241016
  Serious: Yes (Hospitalization)
  Sender: SANOFI AVENTIS
  Company Number: JP-SA-2021SA291534

PATIENT
  Age: 10 Year
  Sex: Male
  Weight: 35.4 kg

DRUGS (15)
  1. INVESTIGATIONAL PRODUCT [Suspect]
     Active Substance: INVESTIGATIONAL PRODUCT
     Indication: Dermatitis atopic
     Dosage: UNK
     Route: 065
  2. VALACYCLOVIR HYDROCHLORIDE [Suspect]
     Active Substance: VALACYCLOVIR HYDROCHLORIDE
     Indication: Impetigo
     Dosage: 1000 MG, BID
     Route: 048
  3. CHLORAMPHENICOL\NEOMYCIN SULFATE\PREDNISOLONE [Suspect]
     Active Substance: CHLORAMPHENICOL\NEOMYCIN SULFATE\PREDNISOLONE
     Indication: Impetigo
     Dosage: 10 G, BID
     Route: 061
  4. PROTOPIC [Concomitant]
     Active Substance: TACROLIMUS
     Indication: Dermatitis atopic
     Dosage: 0.5 G, BID
     Route: 061
     Dates: start: 20200910
  5. PROTOPIC [Concomitant]
     Active Substance: TACROLIMUS
     Dosage: 12 G, BI3D
     Route: 061
     Dates: start: 20201013, end: 20210216
  6. PROTOPIC [Concomitant]
     Active Substance: TACROLIMUS
     Dosage: 12 G, 5IW
     Route: 061
     Dates: start: 20210216
  7. RINDERON V [Concomitant]
     Active Substance: BETAMETHASONE VALERATE
     Indication: Dermatitis atopic
     Dosage: 6 G, BID
     Route: 061
     Dates: start: 20200902, end: 20201013
  8. RINDERON V [Concomitant]
     Active Substance: BETAMETHASONE VALERATE
     Dosage: 6 G, Q3D
     Route: 061
     Dates: start: 20201013, end: 20210216
  9. RINDERON V [Concomitant]
     Active Substance: BETAMETHASONE VALERATE
     Dosage: 6 G, BIW
     Route: 061
     Dates: start: 20210216
  10. RINDERON V [Concomitant]
     Active Substance: BETAMETHASONE VALERATE
     Dosage: 2 G, QOD
     Route: 061
     Dates: start: 20201106
  11. HEPARINOID [Concomitant]
     Indication: Dermatitis atopic
     Dosage: 12 G, BID
     Route: 061
     Dates: start: 20200902
  12. MYSER [DIFLUPREDNATE] [Concomitant]
     Indication: Dermatitis atopic
     Dosage: 6 G, BID
     Route: 061
     Dates: start: 20200907, end: 20201013
  13. MYSER [DIFLUPREDNATE] [Concomitant]
     Dosage: 6 G, Q3D
     Route: 061
     Dates: start: 20201013, end: 20210216
  14. MYSER [DIFLUPREDNATE] [Concomitant]
     Dosage: 6 G, BIW
     Route: 061
     Dates: start: 20210216
  15. NIZORAL [Concomitant]
     Active Substance: KETOCONAZOLE
     Indication: Dermatitis atopic
     Dosage: 2 G, QOD
     Route: 061
     Dates: start: 20201106

REACTIONS (1)
  - Impetigo [Recovered/Resolved]

NARRATIVE: CASE EVENT DATE: 20210801
